FAERS Safety Report 9918317 (Version 1)
Quarter: 2014Q1

REPORT INFORMATION
  Report Type: Spontaneous
  Country: US (occurrence: US)
  Receive Date: 20140224
  Receipt Date: 20140224
  Transmission Date: 20141002
  Serious: Yes (Other)
  Sender: FDA-Public Use
  Company Number: US-BIOGENIDEC-2014BI017107

PATIENT
  Sex: Female
  Weight: 92 kg

DRUGS (9)
  1. AVONEX [Suspect]
     Indication: MULTIPLE SCLEROSIS
     Route: 030
     Dates: start: 20090201
  2. ADVAIR [Concomitant]
     Route: 055
  3. ASA [Concomitant]
     Route: 048
  4. BACLOFEN [Concomitant]
  5. CYMBALTA [Concomitant]
     Route: 048
  6. GABAPENTIN [Concomitant]
     Route: 048
  7. METFORMIN [Concomitant]
     Route: 048
  8. PERCOCET [Concomitant]
     Route: 048
  9. PERMARIN [Concomitant]

REACTIONS (3)
  - Cervix carcinoma [Unknown]
  - Uterine cancer [Unknown]
  - Cardiac pacemaker insertion [Unknown]
